FAERS Safety Report 10070594 (Version 1)
Quarter: 2014Q2

REPORT INFORMATION
  Report Type: Spontaneous
  Country: US (occurrence: US)
  Receive Date: 20140410
  Receipt Date: 20140410
  Transmission Date: 20141212
  Serious: Yes (Death, Hospitalization)
  Sender: FDA-Public Use
  Company Number: US-BAYER-2014-052147

PATIENT
  Age: 22 Year
  Sex: Female

DRUGS (13)
  1. YASMIN [Suspect]
  2. OCELLA [Suspect]
  3. YAZ [Suspect]
  4. GIANVI [Suspect]
  5. BEYAZ [Suspect]
  6. SAFYRAL [Suspect]
  7. PREDNISONE [Concomitant]
  8. ALBUTEROL [Concomitant]
  9. PROAIR HFA [Concomitant]
  10. CEPHALEXIN [Concomitant]
  11. DOPAMINE [Concomitant]
  12. LEVOPHED [Concomitant]
  13. MEDROL [Concomitant]
     Dosage: 60 MG, DAILY

REACTIONS (6)
  - Pulmonary embolism [Fatal]
  - Respiratory failure [Fatal]
  - Injury [Fatal]
  - Pain [None]
  - Emotional distress [None]
  - Pain [Fatal]
